FAERS Safety Report 8358713 (Version 2)
Quarter: 2013Q1

REPORT INFORMATION
  Report Type: Spontaneous
  Country: US (occurrence: US)
  Receive Date: 20120127
  Receipt Date: 20130207
  Transmission Date: 20140127
  Serious: Yes (Other)
  Sender: FDA-Public Use
  Company Number: US-ROCHE-1006917

PATIENT
  Age: 16 Year
  Sex: Male
  Weight: 64.47 kg

DRUGS (2)
  1. ACCUTANE [Suspect]
     Indication: ACNE
     Route: 048
     Dates: start: 199809, end: 19990225
  2. FERROUS SULFATE [Concomitant]

REACTIONS (6)
  - Crohn^s disease [Unknown]
  - Inflammatory bowel disease [Unknown]
  - Anxiety [Unknown]
  - Colitis ulcerative [Unknown]
  - Iron deficiency anaemia [Unknown]
  - Blood triglycerides increased [Unknown]
